FAERS Safety Report 15856204 (Version 2)
Quarter: 2019Q2

REPORT INFORMATION
  Report Type: Spontaneous
  Country: US (occurrence: US)
  Receive Date: 20190123
  Receipt Date: 20190502
  Transmission Date: 20190711
  Serious: No
  Sender: FDA-Public Use
  Company Number: US-BIOGEN-2019BI00684673

PATIENT
  Sex: Female

DRUGS (3)
  1. AVONEX [Suspect]
     Active Substance: INTERFERON BETA-1A
     Indication: MULTIPLE SCLEROSIS
     Route: 050
     Dates: start: 20000401
  2. COPAXONE [Concomitant]
     Active Substance: GLATIRAMER ACETATE
     Route: 050
  3. REBIF [Concomitant]
     Active Substance: INTERFERON BETA-1A
     Route: 050

REACTIONS (2)
  - Rash [Recovered/Resolved]
  - Multiple sclerosis relapse [Recovered/Resolved]
